FAERS Safety Report 7211433-2 (Version None)
Quarter: 2011Q1

REPORT INFORMATION
  Report Type: 
  Country: None (occurrence: None)
  Receive Date: 20110105
  Receipt Date: 20101228
  Transmission Date: 20110831
  Serious: Yes (Congenital Anomaly)
  Sender: FDA-Public Use
  Company Number: FR-ABBOTT-10P-056-0694083-00

PATIENT

DRUGS (4)
  1. SEROPRAM [Suspect]
     Indication: DRUG EXPOSURE DURING PREGNANCY
     Route: 064
  2. FENOFIBRATE [Suspect]
     Indication: DRUG EXPOSURE DURING PREGNANCY
     Route: 064
  3. DEPAKOTE [Suspect]
     Indication: DRUG EXPOSURE DURING PREGNANCY
     Route: 064
  4. ATENOLOL [Suspect]
     Indication: DRUG EXPOSURE DURING PREGNANCY
     Route: 064

REACTIONS (4)
  - CONGENITAL BLADDER ANOMALY [None]
  - AMNIOTIC FLUID VOLUME DECREASED [None]
  - DRUG EXPOSURE DURING PREGNANCY [None]
  - MATERNAL DRUGS AFFECTING FOETUS [None]
